FAERS Safety Report 20949333 (Version 1)
Quarter: 2022Q2

REPORT INFORMATION
  Report Type: Spontaneous
  Country: ES (occurrence: ES)
  Receive Date: 20220613
  Receipt Date: 20220613
  Transmission Date: 20220721
  Serious: Yes (Death, Hospitalization, Other)
  Sender: FDA-Public Use
  Company Number: ES-BoehringerIngelheim-2022-BI-175670

PATIENT
  Age: 68 Year
  Sex: Female

DRUGS (2)
  1. EMPAGLIFLOZIN\METFORMIN HYDROCHLORIDE [Suspect]
     Active Substance: EMPAGLIFLOZIN\METFORMIN HYDROCHLORIDE
     Indication: Type 2 diabetes mellitus
     Dosage: METFORMIN 1 G-EMPAGLIFLOZIN 5 MG EVERY 12 H FOR 39 MONTHS
  2. LINAGLIPTIN [Concomitant]
     Active Substance: LINAGLIPTIN
     Indication: Type 2 diabetes mellitus

REACTIONS (1)
  - Fournier^s gangrene [Fatal]

NARRATIVE: CASE EVENT DATE: 20210101
